FAERS Safety Report 13559445 (Version 3)
Quarter: 2017Q3

REPORT INFORMATION
  Report Type: Report from Study
  Country: DE (occurrence: DE)
  Receive Date: 20170518
  Receipt Date: 20170801
  Transmission Date: 20171127
  Serious: Yes (Hospitalization)
  Sender: FDA-Public Use
  Company Number: DE-BIOGEN-2017BI00402562

PATIENT
  Sex: Female

DRUGS (5)
  1. SOLOTINUS (NOS) [Concomitant]
     Indication: PREGNANCY
     Route: 065
     Dates: start: 201704
  2. TYSABRI [Suspect]
     Active Substance: NATALIZUMAB
     Route: 042
     Dates: start: 20130325, end: 20170403
  3. PREDNISOLONE. [Concomitant]
     Active Substance: PREDNISOLONE
     Indication: PREGNANCY
     Route: 048
     Dates: start: 201704
  4. TYSABRI [Suspect]
     Active Substance: NATALIZUMAB
     Indication: MULTIPLE SCLEROSIS
     Route: 065
     Dates: start: 20101012
  5. ESTRADIOL. [Concomitant]
     Active Substance: ESTRADIOL
     Indication: PREGNANCY
     Route: 065
     Dates: start: 201704

REACTIONS (3)
  - Uterine haematoma [Recovered/Resolved]
  - Imminent abortion [Recovered/Resolved]
  - Maternal exposure during pregnancy [Not Recovered/Not Resolved]
